FAERS Safety Report 7268218-0 (Version None)
Quarter: 2011Q1

REPORT INFORMATION
  Report Type: 
  Country: None (occurrence: None)
  Receive Date: 20110201
  Receipt Date: 20110125
  Transmission Date: 20110831
  Serious: Yes (Death)
  Sender: FDA-Public Use
  Company Number: PHHY2011US07007

PATIENT
  Sex: Male

DRUGS (2)
  1. MIACALCIN [Suspect]
     Dosage: UNK
     Route: 045
  2. ELIDEL [Suspect]
     Dosage: UNK

REACTIONS (1)
  - DEATH [None]
